FAERS Safety Report 12281863 (Version 2)
Quarter: 2016Q2

REPORT INFORMATION
  Report Type: Spontaneous
  Country: US (occurrence: US)
  Receive Date: 20160419
  Receipt Date: 20160429
  Transmission Date: 20160815
  Serious: No
  Sender: FDA-Public Use
  Company Number: US-GLAXOSMITHKLINE-US2016052205

PATIENT
  Age: 70 Year
  Sex: Male

DRUGS (1)
  1. FLONASE [Suspect]
     Active Substance: FLUTICASONE PROPIONATE
     Indication: PRODUCT USED FOR UNKNOWN INDICATION
     Dosage: UNK
     Dates: start: 201603, end: 20160413

REACTIONS (5)
  - Oropharyngeal pain [Recovered/Resolved]
  - Throat tightness [Unknown]
  - Dysphagia [Unknown]
  - Oropharyngeal candidiasis [Unknown]
  - Oral candidiasis [Recovering/Resolving]
